FAERS Safety Report 4510854-6 (Version None)
Quarter: 2004Q4

REPORT INFORMATION
  Report Type: 
  Country: None (occurrence: None)
  Receive Date: 20041025
  Receipt Date: 20030916
  Transmission Date: 20050328
  Serious: Yes (Hospitalization)
  Sender: FDA-Public Use
  Company Number: NSADSS2003004791

PATIENT
  Age: 36 Year
  Sex: Male

DRUGS (11)
  1. REMICADE [Suspect]
     Indication: CROHN'S DISEASE
     Dosage: 400 MG, INTRAVENOUS DRIP
     Route: 041
     Dates: start: 20030124, end: 20030124
  2. REMICADE [Suspect]
     Indication: CROHN'S DISEASE
     Dosage: 400 MG, INTRAVENOUS DRIP
     Route: 041
     Dates: start: 20010302
  3. REMICADE [Suspect]
     Indication: CROHN'S DISEASE
     Dosage: 400 MG, INTRAVENOUS DRIP
     Route: 041
     Dates: start: 20010403
  4. REMICADE [Suspect]
     Indication: CROHN'S DISEASE
     Dosage: 400 MG, INTRAVENOUS DRIP
     Route: 041
     Dates: start: 20010601
  5. REMICADE [Suspect]
     Indication: CROHN'S DISEASE
     Dosage: 400 MG, INTRAVENOUS DRIP
     Route: 041
     Dates: start: 20030103
  6. REMICADE [Suspect]
     Indication: CROHN'S DISEASE
     Dosage: 400 MG, INTRAVENOUS DRIP
     Route: 041
     Dates: start: 20030212
  7. REMICADE [Suspect]
     Indication: CROHN'S DISEASE
     Dosage: 400 MG, INTRAVENOUS DRIP
     Route: 041
     Dates: start: 20030610
  8. REMICADE [Suspect]
     Indication: CROHN'S DISEASE
     Dosage: 400 MG, INTRAVENOUS DRIP
     Route: 041
     Dates: start: 20030829
  9. SANDOSTATIN [Concomitant]
  10. PERCOCET [Concomitant]
  11. PENTASA [Concomitant]

REACTIONS (4)
  - ARTHRALGIA [None]
  - CONDITION AGGRAVATED [None]
  - HYPERSENSITIVITY [None]
  - RASH [None]
